FAERS Safety Report 8852349 (Version 1)
Quarter: 2012Q4

REPORT INFORMATION
  Report Type: 
  Country: DK (occurrence: IT)
  Receive Date: 20121022
  Receipt Date: 20121022
  Transmission Date: 20130627
  Serious: Yes (Hospitalization)
  Sender: FDA-Public Use
  Company Number: IT-FRI-1000039612

PATIENT
  Age: 64 Year
  Sex: Female

DRUGS (4)
  1. CITALOPRAM [Suspect]
     Indication: DEPRESSION
     Dates: start: 2010
  2. CITALOPRAM [Suspect]
     Route: 048
     Dates: start: 20120804, end: 20120804
  3. PANTOPAN [Concomitant]
     Indication: PEPTIC ULCER
  4. BLOPRESID [Concomitant]
     Indication: HYPERTENSION

REACTIONS (5)
  - Convulsion [Recovering/Resolving]
  - Abdominal pain upper [Recovering/Resolving]
  - Arrhythmia [Recovering/Resolving]
  - Drug abuse [Recovering/Resolving]
  - Intentional overdose [Recovering/Resolving]
